FAERS Safety Report 7167145-7 (Version None)
Quarter: 2010Q4

REPORT INFORMATION
  Report Type: 
  Country: None (occurrence: None)
  Receive Date: 20101216
  Receipt Date: 20101210
  Transmission Date: 20110411
  Serious: Yes (Other)
  Sender: FDA-Public Use
  Company Number: US-AMGEN-USASP2010008787

PATIENT

DRUGS (4)
  1. ARANESP [Suspect]
     Indication: ANAEMIA
     Dates: start: 20100819
  2. REMICADE [Concomitant]
     Dosage: UNK
  3. VITAMINS                           /00067501/ [Concomitant]
  4. PLAQUENIL [Concomitant]

REACTIONS (3)
  - HYPERSENSITIVITY [None]
  - PRURITUS [None]
  - RASH GENERALISED [None]
